FAERS Safety Report 19554481 (Version 2)
Quarter: 2021Q3

REPORT INFORMATION
  Report Type: Report from Study
  Country: GB (occurrence: GB)
  Receive Date: 20210714
  Receipt Date: 20210916
  Transmission Date: 20211014
  Serious: Yes (Life-Threatening, Other)
  Sender: FDA-Public Use
  Company Number: GB-BAXTER-2021BAX020402

PATIENT
  Age: 47 Year
  Sex: Female

DRUGS (34)
  1. AVAMYS [Concomitant]
     Active Substance: FLUTICASONE FUROATE
     Indication: PRODUCT USED FOR UNKNOWN INDICATION
     Route: 045
     Dates: start: 20210202
  2. HYDROMOL OINTMENT [Concomitant]
     Active Substance: PARAFFIN\WAX, EMULSIFYING
     Indication: PRODUCT USED FOR UNKNOWN INDICATION
     Dosage: PHARMACEUTICAL FORM: OINTMENT
     Route: 065
  3. OXYBUTYNIN. [Concomitant]
     Active Substance: OXYBUTYNIN CHLORIDE
     Indication: PRODUCT USED FOR UNKNOWN INDICATION
     Dosage: 56 TABLETS AND TABLET FORM
     Route: 065
     Dates: start: 20210202
  4. MATRIFEN [Concomitant]
     Active Substance: FENTANYL
     Indication: PRODUCT USED FOR UNKNOWN INDICATION
     Dosage: 12 MICRONS AND TRANSDERMAL PATCH, 1 UNK, 72 HOURS 12 MICRONES
     Route: 062
     Dates: start: 20210202
  5. TRELEGY ELLIPTA [Concomitant]
     Active Substance: FLUTICASONE FUROATE\UMECLIDINIUM BROMIDE\VILANTEROL TRIFENATATE
     Indication: PRODUCT USED FOR UNKNOWN INDICATION
     Dosage: QD
     Route: 065
     Dates: start: 20210202
  6. NAPROXEN. [Concomitant]
     Active Substance: NAPROXEN
     Indication: PRODUCT USED FOR UNKNOWN INDICATION
     Dosage: 56 TABLETS AND TABLET FORM
     Route: 065
     Dates: start: 20210205
  7. OCTINOXATE. [Concomitant]
     Active Substance: OCTINOXATE
     Indication: PRODUCT USED FOR UNKNOWN INDICATION
     Dosage: QD
     Route: 065
     Dates: start: 20210202
  8. STELARA [Suspect]
     Active Substance: USTEKINUMAB
     Indication: PRODUCT USED FOR UNKNOWN INDICATION
     Dosage: UNK
     Route: 058
     Dates: start: 20200626
  9. COLECALCIFEROL [Concomitant]
     Active Substance: CHOLECALCIFEROL
     Indication: PRODUCT USED FOR UNKNOWN INDICATION
     Dosage: 200 CAPSULES AND CAPSULE FORM
     Route: 065
     Dates: start: 20201022
  10. PARACETAMOL [Concomitant]
     Active Substance: ACETAMINOPHEN
     Indication: PRODUCT USED FOR UNKNOWN INDICATION
     Dosage: 100 TABLETS AND TABLET FORM, QD
     Route: 065
     Dates: start: 20210205
  11. AZITHROMYCIN ANHYDROUS. [Concomitant]
     Active Substance: AZITHROMYCIN ANHYDROUS
     Indication: PRODUCT USED FOR UNKNOWN INDICATION
     Dosage: 250 MILLIGRAM, 12 TABLETS AND TABLET FORM
     Route: 065
     Dates: start: 20210202
  12. METRONIDAZOLE 500 MG / 100 ML INTRAVENOUS INFUSION [Suspect]
     Active Substance: METRONIDAZOLE
     Indication: PRODUCT USED FOR UNKNOWN INDICATION
     Route: 065
  13. CHLORPHENIRAMINE. [Concomitant]
     Active Substance: CHLORPHENIRAMINE
     Indication: PRODUCT USED FOR UNKNOWN INDICATION
     Dosage: 56 TABLETS AND TABLET FORM, 12 MILLIGRAM, QD (56 TABLETS)
     Route: 065
     Dates: start: 20210202
  14. EXOREX [Concomitant]
     Active Substance: COAL TAR
     Indication: PRURITUS
     Dosage: CREAM FORM
     Route: 065
     Dates: start: 20210111
  15. OMEPRAZOLE. [Concomitant]
     Active Substance: OMEPRAZOLE
     Indication: PRODUCT USED FOR UNKNOWN INDICATION
     Dosage: 28 CAPSULES AND CAPSULE FORM, QD
     Route: 065
     Dates: start: 20210202
  16. PREDNISOLONE. [Concomitant]
     Active Substance: PREDNISOLONE
     Indication: PRODUCT USED FOR UNKNOWN INDICATION
     Dosage: 42 TABLETS AND TABLET FORM, QD
     Route: 065
     Dates: start: 20210111
  17. PROMETHAZINE HYDROCHLORIDE. [Concomitant]
     Active Substance: PROMETHAZINE HYDROCHLORIDE
     Indication: PRODUCT USED FOR UNKNOWN INDICATION
     Dosage: 25 MILLIGRAM
     Route: 065
     Dates: start: 20210202
  18. AVOBENZONE [Concomitant]
     Active Substance: AVOBENZONE
     Indication: PRODUCT USED FOR UNKNOWN INDICATION
     Route: 065
     Dates: start: 20210202
  19. OXYBENZONE [Concomitant]
     Active Substance: OXYBENZONE
     Indication: PRODUCT USED FOR UNKNOWN INDICATION
     Route: 065
     Dates: start: 20210202
  20. STELARA [Suspect]
     Active Substance: USTEKINUMAB
     Indication: PSORIASIS
     Dosage: 45 MILLIGRAM (12 WEEK)
     Route: 058
     Dates: start: 20171008
  21. COLOFAC [Concomitant]
     Active Substance: MEBEVERINE HYDROCHLORIDE
     Indication: ABDOMINAL DISTENSION
     Dosage: 84 TABLETS AND TABLET FORM
     Route: 065
     Dates: start: 20191220
  22. FERROUS FUMARATE [Concomitant]
     Active Substance: FERROUS FUMARATE
     Indication: PRODUCT USED FOR UNKNOWN INDICATION
     Dosage: TABLET FORM
     Route: 065
     Dates: start: 20210202
  23. FEXOFENADINE [Concomitant]
     Active Substance: FEXOFENADINE HYDROCHLORIDE
     Indication: PRODUCT USED FOR UNKNOWN INDICATION
     Dosage: TABLET FORM
     Route: 065
     Dates: start: 20210202
  24. SALBUTAMOL [Concomitant]
     Active Substance: ALBUTEROL
     Indication: PRODUCT USED FOR UNKNOWN INDICATION
     Dosage: 200 DOSE
     Route: 065
     Dates: start: 20210202
  25. TOPIRAMATE. [Concomitant]
     Active Substance: TOPIRAMATE
     Indication: PRODUCT USED FOR UNKNOWN INDICATION
     Dosage: 60 TABLETS AND TABLET FORM, QD
     Route: 065
     Dates: start: 20210202
  26. CARBOCISTEINE [Concomitant]
     Active Substance: CARBOCYSTEINE
     Indication: PRODUCT USED FOR UNKNOWN INDICATION
     Dosage: 168 CAPSULES AND CAPSULE FORM
     Route: 065
     Dates: start: 20210202
  27. HYDROXYZINE [Concomitant]
     Active Substance: HYDROXYZINE HYDROCHLORIDE
     Indication: PRODUCT USED FOR UNKNOWN INDICATION
     Dosage: TABLET FORM, QD
     Route: 065
     Dates: start: 20210202
  28. CALCIPOTRIOL [Concomitant]
     Active Substance: CALCIPOTRIENE
     Indication: PRODUCT USED FOR UNKNOWN INDICATION
     Dosage: 60 MILLILITER, QD
     Route: 065
     Dates: start: 20210202
  29. CITALOPRAM [Concomitant]
     Active Substance: CITALOPRAM HYDROBROMIDE
     Indication: PRODUCT USED FOR UNKNOWN INDICATION
     Dosage: TABLET FORM 20 MILLIGRAM, QD
     Route: 065
     Dates: start: 20210202
  30. HYPROMELLOSE [Concomitant]
     Active Substance: HYPROMELLOSES
     Indication: PRODUCT USED FOR UNKNOWN INDICATION
     Dosage: PHARMACEUTICAL FORM: EYE DROPS, QD
     Route: 065
     Dates: start: 20210202
  31. PREGABALIN. [Concomitant]
     Active Substance: PREGABALIN
     Indication: PRODUCT USED FOR UNKNOWN INDICATION
     Dosage: 56 CAPSULES AND CAPSULE FORM
     Route: 065
     Dates: start: 20210125
  32. PROCHLORPERAZINE. [Concomitant]
     Active Substance: PROCHLORPERAZINE
     Indication: DIZZINESS
     Dosage: 14 TABLETS AND TABLET FORM
     Route: 065
  33. TITANIUM DIOXIDE. [Concomitant]
     Active Substance: TITANIUM DIOXIDE
     Indication: PRODUCT USED FOR UNKNOWN INDICATION
     Route: 065
     Dates: start: 20210202
  34. XAMIOL [Concomitant]
     Active Substance: BETAMETHASONE DIPROPIONATE\CALCIPOTRIENE HYDRATE
     Indication: PSORIASIS
     Route: 065
     Dates: start: 20210111

REACTIONS (17)
  - Uterine leiomyoma [Unknown]
  - Tinnitus [Unknown]
  - Psoriasis [Unknown]
  - Anaphylactic reaction [Unknown]
  - Suspected COVID-19 [Unknown]
  - Diverticulum intestinal [Unknown]
  - Hypersensitivity [Unknown]
  - Rotator cuff syndrome [Unknown]
  - Bursitis [Unknown]
  - Tendonitis [Unknown]
  - Bronchiectasis [Unknown]
  - Hyperthyroidism [Unknown]
  - Migraine [Unknown]
  - Presbyacusis [Unknown]
  - Polyp [Recovered/Resolved]
  - Diverticulitis [Unknown]
  - Lower respiratory tract infection [Unknown]

NARRATIVE: CASE EVENT DATE: 20171113
